FAERS Safety Report 4667314-1 (Version None)
Quarter: 2005Q2

REPORT INFORMATION
  Report Type: 
  Country: None (occurrence: None)
  Receive Date: 20050520
  Receipt Date: 20040927
  Transmission Date: 20051028
  Serious: Yes (Other)
  Sender: FDA-Public Use
  Company Number: PHEH2004US10383

PATIENT
  Age: 51 Year
  Sex: Male

DRUGS (23)
  1. ARTHROTEC [Concomitant]
  2. FEOSOL [Concomitant]
  3. CENTRUM [Concomitant]
  4. POTASSIUM CHLORIDE [Concomitant]
  5. FUROSEMIDE [Concomitant]
  6. COMBIVENT                               /GFR/ [Concomitant]
  7. SPIRILENE [Concomitant]
  8. ADVAIR DISKUS 100/50 [Concomitant]
  9. ATIVAN [Concomitant]
  10. ZOFRAN [Concomitant]
  11. DARBEPOETIN ALFA [Concomitant]
  12. EPOGEN [Concomitant]
  13. ZOMETA [Suspect]
     Indication: METASTASES TO BONE
     Dosage: 4 MG MONTHLY
     Route: 042
     Dates: start: 20020830, end: 20050101
  14. GEMZAR [Concomitant]
  15. CARBOPLATIN [Concomitant]
  16. DEXAMETHASONE [Concomitant]
  17. EPOGEN [Concomitant]
     Indication: ANAEMIA
     Dates: start: 20021025, end: 20040416
  18. ARANESP [Concomitant]
     Indication: ANAEMIA
  19. VICODIN [Concomitant]
     Indication: ARTHRALGIA
  20. PREVACID [Concomitant]
     Indication: STOMACH DISCOMFORT
  21. XANAX [Concomitant]
     Indication: ANXIETY
  22. TAXOL [Concomitant]
  23. TAXOTERE [Concomitant]

REACTIONS (6)
  - OSTEOMYELITIS [None]
  - OSTEONECROSIS [None]
  - RADIATION INJURY [None]
  - TOOTH ABSCESS [None]
  - TOOTH EXTRACTION [None]
  - WOUND DEBRIDEMENT [None]
